FAERS Safety Report 19928118 (Version 1)
Quarter: 2021Q4

REPORT INFORMATION
  Report Type: Spontaneous
  Country: US (occurrence: US)
  Receive Date: 20211006
  Receipt Date: 20211006
  Transmission Date: 20220303
  Serious: Yes (Death, Life-Threatening, Hospitalization, Disabling)
  Sender: FDA-Public Use
  Company Number: None

PATIENT
  Age: 82 Year
  Sex: Female
  Weight: 54 kg

DRUGS (1)
  1. ALIMTA [Suspect]
     Active Substance: PEMETREXED DISODIUM
     Indication: Lung neoplasm malignant
     Dates: start: 20210907, end: 20210922

REACTIONS (6)
  - Malaise [None]
  - Haemorrhage [None]
  - Full blood count decreased [None]
  - Vomiting [None]
  - Pain [None]
  - Product prescribing issue [None]

NARRATIVE: CASE EVENT DATE: 20210916
